FAERS Safety Report 15187127 (Version 1)
Quarter: 2018Q3

REPORT INFORMATION
  Report Type: Report from Study
  Country: US (occurrence: US)
  Receive Date: 20180723
  Receipt Date: 20180723
  Transmission Date: 20181010
  Serious: No
  Sender: FDA-Public Use
  Company Number: US-EXELIXIS-CABO-18013087

PATIENT
  Sex: Male

DRUGS (15)
  1. LOSARTAN POTASSIUM. [Concomitant]
     Active Substance: LOSARTAN POTASSIUM
  2. BUPROPION HCL [Concomitant]
     Active Substance: BUPROPION HYDROCHLORIDE
  3. FLUCONAZOLE. [Concomitant]
     Active Substance: FLUCONAZOLE
  4. CLONAZEPAM. [Concomitant]
     Active Substance: CLONAZEPAM
  5. DEXAMETHASON [Concomitant]
     Active Substance: DEXAMETHASONE
  6. HYDROCODONE [Concomitant]
     Active Substance: HYDROCODONE
  7. PREDNISONE. [Concomitant]
     Active Substance: PREDNISONE
  8. MEMANTINE HCL [Concomitant]
     Active Substance: MEMANTINE
  9. MIRTAZAPIN [Concomitant]
     Active Substance: MIRTAZAPINE
  10. NYSTATIN. [Concomitant]
     Active Substance: NYSTATIN
  11. CABOMETYX [Suspect]
     Active Substance: CABOZANTINIB S-MALATE
     Indication: RENAL CANCER
     Dosage: 20 MG, QD
     Route: 048
  12. CLOTRIMAZOLE. [Concomitant]
     Active Substance: CLOTRIMAZOLE
  13. DRONABINOL. [Concomitant]
     Active Substance: DRONABINOL
  14. GABAPENTIN. [Concomitant]
     Active Substance: GABAPENTIN
  15. CLONIDINE HCL [Concomitant]
     Active Substance: CLONIDINE HYDROCHLORIDE

REACTIONS (4)
  - Pelvic pain [Unknown]
  - Fatigue [Not Recovered/Not Resolved]
  - Constipation [Unknown]
  - Feeling cold [Not Recovered/Not Resolved]
